FAERS Safety Report 11774883 (Version 1)
Quarter: 2015Q4

REPORT INFORMATION
  Report Type: Spontaneous
  Country: US (occurrence: US)
  Receive Date: 20151124
  Receipt Date: 20151124
  Transmission Date: 20160304
  Serious: Yes (Hospitalization, Other)
  Sender: FDA-Public Use
  Company Number: US-TARO-2015TAR01082

PATIENT
  Age: 53 Year
  Sex: Male

DRUGS (5)
  1. PHENYTOIN SODIUM EXTENDED [Suspect]
     Active Substance: PHENYTOIN SODIUM
     Dosage: 600 MG TOTAL DAILY DOSE
     Dates: start: 20151117
  2. LYRICA [Concomitant]
     Active Substance: PREGABALIN
     Dosage: 300 MG, 2X/DAY
  3. PHENYTOIN SODIUM EXTENDED [Suspect]
     Active Substance: PHENYTOIN SODIUM
     Indication: SEIZURE
     Dosage: 200 MG, 1X/DAY IN THE MORNING
     Route: 048
     Dates: start: 1990, end: 20151116
  4. LAMICTAL [Concomitant]
     Active Substance: LAMOTRIGINE
     Dosage: 3 DOSAGE UNITS, 2X/DAY
  5. PHENYTOIN SODIUM EXTENDED [Suspect]
     Active Substance: PHENYTOIN SODIUM
     Dosage: 300 MG, 1X/DAY IN THE EVENING
     Route: 048
     Dates: start: 1990, end: 20151116

REACTIONS (3)
  - Drug ineffective [Recovered/Resolved]
  - Seizure [Recovered/Resolved]
  - Anticonvulsant drug level decreased [Unknown]

NARRATIVE: CASE EVENT DATE: 20151116
